FAERS Safety Report 4684727-2 (Version None)
Quarter: 2005Q2

REPORT INFORMATION
  Report Type: 
  Country: None (occurrence: None)
  Receive Date: 20050531
  Receipt Date: 20050111
  Transmission Date: 20051028
  Serious: Yes (Hospitalization)
  Sender: FDA-Public Use
  Company Number: USA050188386

PATIENT
  Age: 42 Year
  Sex: Male

DRUGS (1)
  1. ZYPREXA [Suspect]
     Dosage: 10 MG/1 DAY

REACTIONS (2)
  - ALCOHOLISM [None]
  - BLOOD TRIGLYCERIDES INCREASED [None]
